FAERS Safety Report 4810066-2 (Version None)
Quarter: 2005Q4

REPORT INFORMATION
  Report Type: 
  Country: None (occurrence: None)
  Receive Date: 20051024
  Receipt Date: 20051011
  Transmission Date: 20060501
  Serious: Yes (Death, Other)
  Sender: FDA-Public Use
  Company Number: 2005141374

PATIENT
  Age: 55 Year
  Sex: Male

DRUGS (5)
  1. AZITHROMYCIN [Suspect]
     Indication: PHARYNGITIS
     Dosage: 500 MG, ORAL
     Route: 048
     Dates: start: 20051006
  2. TRANSAMIN (TRANEXAMIC ACID) [Concomitant]
  3. MUCODYNE (CARBOCISTEINE) [Concomitant]
  4. LOXONIN (LOXOPROFEN SODIUM) [Concomitant]
  5. ISODINE (POVIDONE-IODINE) [Concomitant]

REACTIONS (6)
  - ANURIA [None]
  - BALANCE DISORDER [None]
  - BLOOD POTASSIUM INCREASED [None]
  - CARDIAC ARREST [None]
  - DIABETES MELLITUS [None]
  - FALL [None]
